FAERS Safety Report 10232822 (Version 3)
Quarter: 2014Q3

REPORT INFORMATION
  Report Type: Spontaneous
  Country: ZA (occurrence: ZA)
  Receive Date: 20140612
  Receipt Date: 20140801
  Transmission Date: 20150326
  Serious: Yes (Hospitalization)
  Sender: FDA-Public Use
  Company Number: ZA-BAYER-2014-082039

PATIENT
  Age: 69 Year
  Sex: Female

DRUGS (3)
  1. GADOVIST [Suspect]
     Active Substance: GADOBUTROL
     Indication: SYRINGOMYELIA
  2. GADOVIST [Suspect]
     Active Substance: GADOBUTROL
     Indication: CONTRAST MEDIA REACTION
     Dosage: 8 ML, ONCE
     Route: 042
     Dates: start: 20140530, end: 20140530
  3. GADOVIST [Suspect]
     Active Substance: GADOBUTROL
     Indication: NUCLEAR MAGNETIC RESONANCE IMAGING SPINAL

REACTIONS (4)
  - Tongue discolouration [Recovered/Resolved]
  - Respiratory distress [Recovered/Resolved]
  - Nausea [Recovered/Resolved]
  - Burning sensation [Recovered/Resolved]

NARRATIVE: CASE EVENT DATE: 20140530
